FAERS Safety Report 9960182 (Version 2)
Quarter: 2014Q1

REPORT INFORMATION
  Report Type: Report from Study
  Country: US (occurrence: US)
  Receive Date: 20140305
  Receipt Date: 20140305
  Transmission Date: 20141002
  Serious: No
  Sender: FDA-Public Use
  Company Number: US-ABBVIE-12P-163-1023648-00

PATIENT
  Age: 57 Year
  Sex: Male

DRUGS (6)
  1. HUMIRA [Suspect]
     Indication: CROHN^S DISEASE
     Dosage: LOADING
     Route: 058
     Dates: start: 20121120, end: 20121120
  2. HUMIRA [Suspect]
     Route: 058
     Dates: start: 20121204, end: 20121204
  3. HUMIRA [Suspect]
     Route: 058
     Dates: end: 201304
  4. ALLOPURINOL [Concomitant]
     Indication: PRODUCT USED FOR UNKNOWN INDICATION
  5. 6-MP [Concomitant]
     Indication: PRODUCT USED FOR UNKNOWN INDICATION
  6. APRISO [Concomitant]
     Indication: PRODUCT USED FOR UNKNOWN INDICATION

REACTIONS (4)
  - Injection site pain [Not Recovered/Not Resolved]
  - Injection site pain [Not Recovered/Not Resolved]
  - Drug ineffective [Not Recovered/Not Resolved]
  - Myalgia [Recovered/Resolved]
